FAERS Safety Report 15684329 (Version 1)
Quarter: 2018Q4

REPORT INFORMATION
  Report Type: Spontaneous
  Country: ZA (occurrence: ZA)
  Receive Date: 20181204
  Receipt Date: 20181204
  Transmission Date: 20190205
  Serious: Yes (Hospitalization)
  Sender: FDA-Public Use
  Company Number: ZA-LUPIN PHARMACEUTICALS INC.-2018-08400

PATIENT
  Sex: Male

DRUGS (11)
  1. SPIRACTIN                          /00006201/ [Suspect]
     Active Substance: SPIRONOLACTONE
     Indication: DIURETIC THERAPY
     Dosage: 25 MG, UNK
     Route: 048
     Dates: start: 201808
  2. PURICOS [Suspect]
     Active Substance: ALLOPURINOL
     Indication: PROPHYLAXIS
     Dosage: 300 MG, UNK
     Route: 048
     Dates: start: 201805
  3. ABITREXATE [Suspect]
     Active Substance: METHOTREXATE SODIUM
     Indication: PRODUCT USED FOR UNKNOWN INDICATION
     Dosage: 2.5 MG, UNK
     Route: 048
     Dates: start: 201805
  4. ASPEN WARFARIN [Suspect]
     Active Substance: WARFARIN
     Indication: ANTICOAGULANT THERAPY
     Dosage: 5 MG, UNK
     Route: 048
     Dates: start: 201805
  5. AUSTELL RAMIPRIL [Suspect]
     Active Substance: RAMIPRIL
     Indication: HYPERTENSION
     Dosage: 10 MG, UNK
     Route: 048
     Dates: start: 201805
  6. UNAT                               /01036501/ [Suspect]
     Active Substance: TORSEMIDE
     Indication: DIURETIC THERAPY
     Dosage: 5 MG, UNK
     Route: 048
     Dates: start: 201809
  7. DYNA INDAPAMIDE [Suspect]
     Active Substance: INDAPAMIDE
     Indication: HYPERTENSION
     Dosage: 1.5 MG, UNK
     Route: 048
     Dates: start: 201805
  8. ASPAVOR [Suspect]
     Active Substance: ATORVASTATIN
     Indication: BLOOD CHOLESTEROL ABNORMAL
     Dosage: 10 MG, UNK
     Route: 048
     Dates: start: 201805
  9. FLEXOCAM [Suspect]
     Active Substance: MELOXICAM
     Indication: PAIN
     Dosage: 15 MG, UNK
     Route: 048
     Dates: start: 201805
  10. CARDICOR [Suspect]
     Active Substance: BISOPROLOL
     Indication: HYPERTENSION
     Dosage: 2.5 MG, UNK
     Route: 048
     Dates: start: 201805
  11. CIPLAVASC [Suspect]
     Active Substance: AMLODIPINE BESYLATE
     Indication: HYPERTENSION
     Dosage: 5 MG, UNK
     Route: 048
     Dates: start: 201805

REACTIONS (1)
  - Renal disorder [Unknown]
